FAERS Safety Report 4894720-2 (Version None)
Quarter: 2006Q1

REPORT INFORMATION
  Report Type: 
  Country: None (occurrence: None)
  Receive Date: 20060127
  Receipt Date: 20060127
  Transmission Date: 20060701
  Serious: No
  Sender: FDA-Public Use
  Company Number: None

PATIENT
  Sex: Male

DRUGS (2)
  1. AMITRIPTYLINE 50 MG QUALITEST [Suspect]
     Dosage: 50 MG ONCE DAILY PO
     Route: 048
     Dates: start: 20040312, end: 20060126
  2. SELEGILINE HYDROCHLORIDE [Suspect]
     Dosage: 5 MG ONCE DAILY PO
     Route: 048
     Dates: start: 20050210, end: 20060126

REACTIONS (1)
  - DRUG INTERACTION [None]
